FAERS Safety Report 8489630-8 (Version None)
Quarter: 2012Q3

REPORT INFORMATION
  Report Type: 
  Country: None (occurrence: None)
  Receive Date: 20120705
  Receipt Date: 20120627
  Transmission Date: 20120928
  Serious: No
  Sender: FDA-Public Use
  Company Number: US-US-EMD SERONO, INC.-7010401

PATIENT
  Sex: Female

DRUGS (3)
  1. REBIF [Suspect]
     Route: 058
  2. CORTICOSTEROIDS [Concomitant]
     Indication: ARTHRITIS
  3. REBIF [Suspect]
     Indication: MULTIPLE SCLEROSIS
     Route: 058
     Dates: start: 20090729

REACTIONS (2)
  - ARTHRALGIA [None]
  - INFLUENZA LIKE ILLNESS [None]
